APPROVED DRUG PRODUCT: PRAZOSIN HYDROCHLORIDE
Active Ingredient: PRAZOSIN HYDROCHLORIDE
Strength: EQ 1MG BASE
Dosage Form/Route: CAPSULE;ORAL
Application: A214083 | Product #001
Applicant: LANNETT CO INC
Approved: Jan 3, 2024 | RLD: No | RS: No | Type: DISCN